FAERS Safety Report 9147832 (Version 1)
Quarter: 2013Q1

REPORT INFORMATION
  Report Type: Spontaneous
  Country: US (occurrence: US)
  Receive Date: 20130307
  Receipt Date: 20130307
  Transmission Date: 20140127
  Serious: Yes (Other)
  Sender: FDA-Public Use
  Company Number: CHPA2013US004095

PATIENT
  Sex: Male

DRUGS (2)
  1. GAS-X EXTSTR CHEWABLE TABS CHERRY CREME [Suspect]
     Dosage: UNK, UNK
     Route: 048
  2. INSULIN [Concomitant]
     Indication: BLOOD GLUCOSE INCREASED
     Dosage: UNK, UNK

REACTIONS (2)
  - Blood glucose increased [Unknown]
  - Concomitant disease aggravated [Unknown]
